FAERS Safety Report 25981773 (Version 1)
Quarter: 2025Q4

REPORT INFORMATION
  Report Type: Report from Study
  Country: US (occurrence: None)
  Receive Date: 20251031
  Receipt Date: 20251031
  Transmission Date: 20260118
  Serious: Yes (Other)
  Sender: UCB
  Company Number: US-UCBSA-2025067510

PATIENT
  Age: 29 Year
  Weight: 76.7 kg

DRUGS (4)
  1. FENFLURAMINE [Suspect]
     Active Substance: FENFLURAMINE
     Indication: Lennox-Gastaut syndrome
     Dosage: 5.9 MILLILITER, 2X/DAY (BID)
  2. X-copri [Concomitant]
     Indication: Seizure
     Dosage: 200 MILLIGRAM EVERY NIGHT
  3. DIVALPROEX SODIUM [Concomitant]
     Active Substance: DIVALPROEX SODIUM
     Indication: Seizure
     Dosage: 500 MILLIGRAM, 2X/DAY (BID)
  4. OMEPRAZOLE [Concomitant]
     Active Substance: OMEPRAZOLE
     Indication: Abdominal pain
     Dosage: UNK

REACTIONS (1)
  - Tricuspid valve incompetence [Not Recovered/Not Resolved]
